APPROVED DRUG PRODUCT: SULFAMYLON
Active Ingredient: MAFENIDE ACETATE
Strength: EQ 85MG BASE/GM
Dosage Form/Route: CREAM;TOPICAL
Application: N016763 | Product #001
Applicant: RISING PHARMA HOLDINGS INC
Approved: Approved Prior to Jan 1, 1982 | RLD: Yes | RS: Yes | Type: RX